FAERS Safety Report 8560590-4 (Version None)
Quarter: 2012Q3

REPORT INFORMATION
  Report Type: 
  Country: None (occurrence: None)
  Receive Date: 20120723
  Receipt Date: 20120712
  Transmission Date: 20120928
  Serious: Yes (Hospitalization)
  Sender: FDA-Public Use
  Company Number: AUR-APL-2012-01764

PATIENT
  Age: 53 Year
  Sex: Female
  Weight: 82 kg

DRUGS (11)
  1. METOPROLOL TARTRATE [Concomitant]
  2. CITALOPRAM HYDROBROMIDE [Suspect]
     Indication: DEPRESSION
     Dosage: 10 MG (10 MG, 1 IN 1 D), ORAL
     Route: 048
     Dates: start: 20060101
  3. METFFORMIN HYDROCHLORIDE [Suspect]
     Indication: TYPE 2 DIABETES MELLITUS
     Dosage: 850 MG (850 MG, 1 IN 1 D), ORAL
     Route: 048
     Dates: start: 20070817
  4. ENALAPRIL MALEATE [Concomitant]
  5. CP-690, 550 [Suspect]
     Indication: RHEUMATOID ARTHRITIS
     Dosage: 20 MG (10 MG, 2 IN 1 D), ORAL
     Route: 048
     Dates: start: 20100929, end: 20120117
  6. EPROSARTAN (EPROSARTAN) [Concomitant]
  7. METHOTREXATE SODIUM [Suspect]
     Indication: RHEUMATOID ARTHRITIS
     Dosage: 7.5 MG WEEKLY, ORAL
     Route: 048
     Dates: start: 20110923, end: 20120220
  8. PROTHIPENDYL (PROTHIPENDYL) [Suspect]
     Indication: DEPRESSION
     Dosage: 40 MG (40 MG, 1 IN 1 D), ORAL
     Route: 048
     Dates: start: 20060101, end: 20120220
  9. OMEPRAZOLE [Concomitant]
  10. FOLIC ACID [Concomitant]
  11. MESALAMINE [Concomitant]

REACTIONS (3)
  - HEPATIC STEATOSIS [None]
  - HAEMOGLOBIN DECREASED [None]
  - GENERAL PHYSICAL HEALTH DETERIORATION [None]
